FAERS Safety Report 9176072 (Version 1)
Quarter: 2013Q1

REPORT INFORMATION
  Report Type: Spontaneous
  Country: CA (occurrence: CA)
  Receive Date: 20130320
  Receipt Date: 20130320
  Transmission Date: 20140127
  Serious: Yes (Life-Threatening)
  Sender: FDA-Public Use
  Company Number: PHHY2013CA026187

PATIENT
  Sex: Female

DRUGS (3)
  1. EVEROLIMUS [Suspect]
     Indication: BREAST CANCER METASTATIC
     Dosage: 10 MG, QD
     Route: 048
     Dates: start: 20121022, end: 20130227
  2. CLINDAMYCIN [Suspect]
     Indication: TOOTH INFECTION
     Dates: start: 201301
  3. EXEMESTANE [Concomitant]
     Indication: BREAST CANCER METASTATIC
     Dosage: 25 MG, QD
     Route: 048
     Dates: start: 20121022

REACTIONS (3)
  - Pneumonitis [Recovering/Resolving]
  - Cough [Recovered/Resolved]
  - Drug level increased [Unknown]
